FAERS Safety Report 4970013-X (Version None)
Quarter: 2006Q2

REPORT INFORMATION
  Report Type: 
  Country: None (occurrence: None)
  Receive Date: 20060412
  Receipt Date: 20060227
  Transmission Date: 20061013
  Serious: Yes (Other)
  Sender: FDA-Public Use
  Company Number: PHBS2006JP03424

PATIENT
  Age: 65 Year
  Sex: Male
  Weight: 62 kg

DRUGS (4)
  1. NIZORAL [Concomitant]
     Indication: TINEA PEDIS
     Dosage: 1 G/D
     Route: 061
     Dates: start: 20050811, end: 20060224
  2. KERATINAMIN [Concomitant]
     Indication: TINEA PEDIS
     Dosage: 1 G/D
     Route: 061
     Dates: start: 20050811, end: 20060224
  3. MYCOSPOR [Concomitant]
     Indication: TINEA PEDIS
     Dosage: 0.5 ML/D
     Route: 061
     Dates: start: 20050811, end: 20060224
  4. LAMISIL [Suspect]
     Indication: NAIL TINEA
     Dosage: UNK, UNK
     Route: 048
     Dates: start: 20050811, end: 20060224

REACTIONS (3)
  - CALCULUS URETERIC [None]
  - HAEMATURIA [None]
  - URINARY RETENTION [None]
